FAERS Safety Report 7285291-4 (Version None)
Quarter: 2011Q1

REPORT INFORMATION
  Report Type: 
  Country: None (occurrence: None)
  Receive Date: 20110210
  Receipt Date: 20110201
  Transmission Date: 20110831
  Serious: Yes (Other)
  Sender: FDA-Public Use
  Company Number: FR-SANOFI-AVENTIS-2011SA007169

PATIENT
  Age: 74 Year
  Sex: Female

DRUGS (2)
  1. KERLONE [Concomitant]
  2. MULTAQ [Suspect]
     Route: 048
     Dates: start: 20101209

REACTIONS (1)
  - HEPATOCELLULAR INJURY [None]
